FAERS Safety Report 24958257 (Version 1)
Quarter: 2025Q1

REPORT INFORMATION
  Report Type: Spontaneous
  Country: US (occurrence: US)
  Receive Date: 20250212
  Receipt Date: 20250212
  Transmission Date: 20250409
  Serious: Yes (Disabling, Other)
  Sender: CHATTEM
  Company Number: US-OPELLA-2025OHG003536

PATIENT
  Age: 15 Year
  Sex: Female

DRUGS (1)
  1. GOLD BOND ORIGINAL STRENGTH [Suspect]
     Active Substance: MENTHOL
     Indication: Product used for unknown indication
     Route: 065

REACTIONS (2)
  - Peritoneal mesothelioma malignant [Unknown]
  - Exposure to chemical pollution [Recovered/Resolved]

NARRATIVE: CASE EVENT DATE: 19750101
